FAERS Safety Report 14199625 (Version 1)
Quarter: 2017Q4

REPORT INFORMATION
  Report Type: Spontaneous
  Country: US (occurrence: US)
  Receive Date: 20171117
  Receipt Date: 20171117
  Transmission Date: 20180321
  Serious: Yes (Other)
  Sender: FDA-Public Use
  Company Number: None

PATIENT
  Age: 49 Year
  Sex: Female
  Weight: 66.15 kg

DRUGS (1)
  1. CREST 3D WHITE LUXE GLAMOROUS WHITE MULTI-CARE [Suspect]
     Active Substance: HYDROGEN PEROXIDE
     Indication: DENTAL COSMETIC PROCEDURE
     Dosage: ?          QUANTITY:1 OUNCE(S);OTHER ROUTE:BRUSHING TEETH?
     Dates: start: 20171109

REACTIONS (7)
  - Headache [None]
  - Sensitivity of teeth [None]
  - Glossodynia [None]
  - Acne [None]
  - Blister [None]
  - Oral pain [None]
  - Chapped lips [None]

NARRATIVE: CASE EVENT DATE: 20171110
